FAERS Safety Report 7560703-7 (Version None)
Quarter: 2011Q2

REPORT INFORMATION
  Report Type: 
  Country: None (occurrence: None)
  Receive Date: 20110621
  Receipt Date: 20110616
  Transmission Date: 20111010
  Serious: No
  Sender: FDA-Public Use
  Company Number: US-PFIZER INC-2011132568

PATIENT
  Sex: Female
  Weight: 74.376 kg

DRUGS (19)
  1. CITRACAL [Concomitant]
     Indication: BONE DISORDER
     Dosage: UNK, THREE TIMES A DAY
  2. OXYCODONE [Concomitant]
     Indication: OSTEOPOROSIS
     Dosage: 15 MG, EVERY 4 HRS
  3. NEXIUM [Concomitant]
     Indication: GASTRIC DISORDER
     Dosage: 40 MG, DAILY
     Route: 048
  4. ASPIRIN [Concomitant]
     Indication: CARDIAC DISORDER
     Dosage: 81 MG, DAILY
     Route: 048
  5. CYMBALTA [Concomitant]
     Indication: NERVOUS SYSTEM DISORDER
  6. CYMBALTA [Concomitant]
     Indication: DEPRESSION
     Dosage: 60 MG, DAILY
  7. PROTONIX [Concomitant]
     Indication: GASTRIC DISORDER
     Dosage: DAILY
  8. RELISTOR [Suspect]
     Indication: CONSTIPATION
  9. CYTOTEC [Concomitant]
     Indication: GASTRIC DISORDER
     Dosage: UNK, 4X/DAY
  10. TRICOR [Concomitant]
     Indication: BLOOD CHOLESTEROL ABNORMAL
     Dosage: 48 MG, DAILY
  11. FAMOTIDINE [Concomitant]
     Dosage: UNK
  12. RELISTOR [Suspect]
     Indication: INTESTINAL FUNCTIONAL DISORDER
     Dosage: 12MG/0.6ML, EVERY OTHER DAY
     Route: 058
     Dates: start: 20110525
  13. TRAZODONE [Concomitant]
     Indication: SLEEP DISORDER
     Dosage: 150 MG, DAILY
     Route: 048
  14. KLONOPIN [Concomitant]
     Indication: NERVOUS SYSTEM DISORDER
     Dosage: UNK
  15. FISH OIL [Concomitant]
     Indication: CARDIAC DISORDER
     Dosage: 1000 MG, 4X/DAY
  16. CYCLAMEN [Concomitant]
     Indication: MUSCLE SPASMS
     Dosage: 20 MG, UNK
  17. TREPROSTINIL SODIUM [Concomitant]
     Dosage: UNK
  18. LISINOPRIL [Concomitant]
     Indication: BLOOD PRESSURE ABNORMAL
     Dosage: UNK
  19. VITAMIN B-12 [Concomitant]
     Dosage: DAILY

REACTIONS (2)
  - DRUG INEFFECTIVE [None]
  - CONSTIPATION [None]
